FAERS Safety Report 15147151 (Version 1)
Quarter: 2018Q3

REPORT INFORMATION
  Report Type: Spontaneous
  Country: US (occurrence: US)
  Receive Date: 20180618
  Receipt Date: 20180618
  Transmission Date: 20181010
  Serious: No
  Sender: FDA-Public Use
  Company Number: None

PATIENT
  Age: 56 Year
  Sex: Female

DRUGS (1)
  1. VANCOMYCIN 1 GRAM FRESENIUS KABI USA [Suspect]
     Active Substance: VANCOMYCIN
     Indication: CELLULITIS
     Route: 042
     Dates: start: 20180327

REACTIONS (4)
  - Pruritus [None]
  - Rash [None]
  - Eye swelling [None]
  - Erythema [None]
